FAERS Safety Report 7820327-0 (Version None)
Quarter: 2011Q4

REPORT INFORMATION
  Report Type: 
  Country: None (occurrence: None)
  Receive Date: 20111018
  Receipt Date: 20111006
  Transmission Date: 20120403
  Serious: Yes (Hospitalization)
  Sender: FDA-Public Use
  Company Number: NL-ROCHE-1002807

PATIENT
  Sex: Male

DRUGS (4)
  1. PLATINUM COMPOUND NOS [Suspect]
     Indication: GASTRIC CANCER
     Dosage: LAST DOSE: 03 OCT 2011
     Route: 042
     Dates: start: 20110912
  2. XELODA [Suspect]
     Indication: GASTRIC CANCER
     Dosage: LAST DOSE: 03 OCT 2011
     Route: 048
     Dates: start: 20110912
  3. EPIRUBICIN HYDROCHLORIDE [Suspect]
     Indication: GASTRIC CANCER
     Dosage: LAST DOSE: 03 OCT 2011
     Route: 042
     Dates: start: 20110912
  4. PRIMPERAN (NETHERLANDS) [Concomitant]

REACTIONS (1)
  - HICCUPS [None]
